FAERS Safety Report 6611256-9 (Version None)
Quarter: 2010Q1

REPORT INFORMATION
  Report Type: 
  Country: None (occurrence: None)
  Receive Date: 20100301
  Receipt Date: 20100301
  Transmission Date: 20100710
  Serious: Yes (Hospitalization)
  Sender: FDA-Public Use
  Company Number: None

PATIENT
  Sex: Male
  Weight: 55.6 kg

DRUGS (6)
  1. METHOTREXATE [Suspect]
     Dosage: 30 MG
     Dates: end: 20100219
  2. PEG-L-ASPARAGINASE (PEGASPARGASE, ONCOSPAR) [Suspect]
     Dosage: 4175 IU
     Dates: end: 20100124
  3. PREDNISONE [Suspect]
     Dosage: 2750 MG
     Dates: end: 20100217
  4. VINCRISTINE SULFATE [Suspect]
     Dosage: 8 MG
     Dates: end: 20100212
  5. CYTARABINE [Suspect]
     Dosage: 70 MG
     Dates: end: 20100120
  6. DAUNORUBICIN HCL [Suspect]
     Dosage: 164.8 MG
     Dates: end: 20100212

REACTIONS (14)
  - ACTIVATED PARTIAL THROMBOPLASTIN TIME SHORTENED [None]
  - AGITATION [None]
  - BLOOD AMYLASE INCREASED [None]
  - CONSTIPATION [None]
  - CONVULSION [None]
  - COUGH [None]
  - ENTEROVIRUS INFECTION [None]
  - GASTRITIS [None]
  - HAEMOGLOBIN DECREASED [None]
  - HYPERTENSION [None]
  - PLATELET COUNT DECREASED [None]
  - PYREXIA [None]
  - RHINOVIRUS INFECTION [None]
  - WHITE BLOOD CELL COUNT DECREASED [None]
